FAERS Safety Report 6186825-3 (Version None)
Quarter: 2009Q2

REPORT INFORMATION
  Report Type: 
  Country: None (occurrence: None)
  Receive Date: 20090508
  Receipt Date: 20090508
  Transmission Date: 20091009
  Serious: No
  Sender: FDA-Public Use
  Company Number: None

PATIENT
  Age: 61 Year
  Sex: Male
  Weight: 74.84 kg

DRUGS (1)
  1. DEXTROSE/HEPARIN [Suspect]
     Indication: DEEP VEIN THROMBOSIS
     Dosage: 20-38 ML PER HOUR IV
     Route: 042
     Dates: start: 20080518, end: 20080519

REACTIONS (1)
  - HEPARIN-INDUCED THROMBOCYTOPENIA [None]
